FAERS Safety Report 6445465-9 (Version None)
Quarter: 2009Q4

REPORT INFORMATION
  Report Type: 
  Country: None (occurrence: None)
  Receive Date: 20091118
  Receipt Date: 20091106
  Transmission Date: 20100525
  Serious: No
  Sender: FDA-Public Use
  Company Number: US-B.I. PHARMACEUTICALS,INC./RIDGEFIELD-2009-BP-12985BP

PATIENT
  Age: 18 Year
  Sex: Male

DRUGS (7)
  1. CLONIDINE HCL [Suspect]
  2. CYMBALTA [Suspect]
     Indication: DEPRESSION
     Dosage: 30 MG
     Dates: start: 20090901
  3. CYMBALTA [Suspect]
     Dosage: 60 MG
     Dates: start: 20090901, end: 20091013
  4. STRATTERA [Concomitant]
  5. ABILIFY [Concomitant]
  6. FOCALIN [Concomitant]
  7. INFLUENZA VACCINE /000270021/ (INFLUENZA VIRUS VACCINE POLYVALENT) [Concomitant]
     Dates: start: 20091006

REACTIONS (16)
  - ABNORMAL BEHAVIOUR [None]
  - APATHY [None]
  - CHILLS [None]
  - COLD SWEAT [None]
  - DEPRESSION [None]
  - DIZZINESS [None]
  - DRUG INTERACTION [None]
  - FEELING ABNORMAL [None]
  - HYPERHIDROSIS [None]
  - MALAISE [None]
  - MYDRIASIS [None]
  - SOMNOLENCE [None]
  - TENSION [None]
  - TREMOR [None]
  - VERTIGO [None]
  - VOMITING [None]
